FAERS Safety Report 9645872 (Version 1)
Quarter: 2013Q4

REPORT INFORMATION
  Report Type: Spontaneous
  Country: US (occurrence: None)
  Receive Date: 20131024
  Receipt Date: 20131024
  Transmission Date: 20140711
  Serious: Yes (Hospitalization, Other)
  Sender: FDA-Public Use
  Company Number: None

PATIENT
  Age: 47 Year
  Sex: Female
  Weight: 113.6 kg

DRUGS (8)
  1. COPAXONE [Suspect]
     Indication: MULTIPLE SCLEROSIS
     Route: 058
     Dates: start: 2007, end: 201201
  2. LOTRIL [Concomitant]
  3. BUSPAR [Concomitant]
  4. TRAZODONE [Concomitant]
  5. FLEXERIL [Concomitant]
  6. LOPRESSER [Concomitant]
  7. OXYBUTNIN [Concomitant]
  8. ACIPHEX [Concomitant]

REACTIONS (2)
  - Bladder cancer [None]
  - Drug hypersensitivity [None]
